FAERS Safety Report 18936026 (Version 1)
Quarter: 2021Q1

REPORT INFORMATION
  Report Type: Spontaneous
  Country: US (occurrence: US)
  Receive Date: 20210224
  Receipt Date: 20210224
  Transmission Date: 20210420
  Serious: No
  Sender: FDA-Public Use
  Company Number: US-TEVA-2021-US-1875562

PATIENT
  Age: 73 Year
  Sex: Female

DRUGS (20)
  1. C 1000 ORAL TABLET 1000 MG [Concomitant]
     Route: 048
  2. CALCIUM LACTATE ORAL TABLET 750 MG [Concomitant]
     Route: 048
  3. AUSTEDO [Suspect]
     Active Substance: DEUTETRABENAZINE
     Route: 048
  4. OMEPRAZOLE ORAL CAPSULE DELAYED RELEASE 40 MG [Concomitant]
     Route: 048
  5. PANTOPRAZOLE SODIUM ORAL PACKET 40 MG [Concomitant]
     Route: 048
  6. ZENPEP ORAL CAPSULES DELAYED RELEASE PARTICLES 40000?120000 UNIT [Concomitant]
     Route: 048
  7. BENADRYL ALLERGY ORAL CAPSULES 25 MG [Concomitant]
     Route: 048
  8. PROMETHASINE HCL ORAL TABLET 25 MG [Concomitant]
     Route: 048
  9. LEVOTHYROXINE SODIUM ORAL TABLET 112 MCG [Concomitant]
     Route: 048
  10. ERY?TAB ORAL TABLET DELAYED RELEASE 250 MG [Concomitant]
     Route: 048
  11. TRANSDERM SCOP (1.5 MG) TRANSDERMAL PATCH 72H 1 MCG/3DYS [Concomitant]
     Route: 062
  12. ONDANSETRON ORAL TABLET DISINTEGRATING 8MG [Concomitant]
     Route: 048
  13. MYRBETRIQ ORAL TABLET EXTENDED RELEASE 24 HOUR 25 MG [Concomitant]
     Route: 048
  14. AUSTEDO [Suspect]
     Active Substance: DEUTETRABENAZINE
     Indication: TARDIVE DYSKINESIA
     Dosage: 24 MILLIGRAM DAILY;
     Route: 048
  15. STOOL SOFTENER ORAL CAPSULE 100 MG [Concomitant]
     Route: 048
  16. SOLIFENACIN SUCCINATE ORAL TABLET 6 MG [Concomitant]
     Route: 048
  17. D3?50 ORAL CAPSULE 125 MG (50000 UT) [Concomitant]
     Route: 048
  18. MIRALAX ORAL POWDER 17 GR [Concomitant]
     Route: 048
  19. AUSTEDO [Suspect]
     Active Substance: DEUTETRABENAZINE
     Route: 048
  20. D3 HIGHT POTENCY ORAL CAPSULE 50 MCG (2000 UT) [Concomitant]
     Route: 048

REACTIONS (4)
  - Constipation [Unknown]
  - Appetite disorder [Unknown]
  - Nausea [Unknown]
  - Abdominal distension [Unknown]
